FAERS Safety Report 6626686-9 (Version None)
Quarter: 2010Q1

REPORT INFORMATION
  Report Type: 
  Country: None (occurrence: None)
  Receive Date: 20100308
  Receipt Date: 20100226
  Transmission Date: 20100710
  Serious: Yes (Disabling)
  Sender: FDA-Public Use
  Company Number: OSCN-NO-1003S-0056

PATIENT
  Age: 46 Year
  Sex: Female

DRUGS (1)
  1. OMNISCAN [Suspect]
     Indication: DRUG USE FOR UNKNOWN INDICATION
     Dosage: 0.2 ML, SINGLE DOSE, INTRA-ARTICULAR
     Route: 014
     Dates: start: 20090920, end: 20090920

REACTIONS (4)
  - ANXIETY [None]
  - ASTHENIA [None]
  - FATIGUE [None]
  - TREMOR [None]
